FAERS Safety Report 6420755-4 (Version None)
Quarter: 2009Q4

REPORT INFORMATION
  Report Type: 
  Country: None (occurrence: None)
  Receive Date: 20091030
  Receipt Date: 20091023
  Transmission Date: 20100525
  Serious: No
  Sender: FDA-Public Use
  Company Number: US-BIOGENIDEC-2009BI024844

PATIENT
  Sex: Female

DRUGS (6)
  1. AVONEX [Suspect]
     Indication: MULTIPLE SCLEROSIS
     Route: 030
     Dates: start: 20060617, end: 20070209
  2. AVONEX [Suspect]
     Route: 030
     Dates: start: 20080919
  3. AVONEX [Suspect]
     Route: 030
     Dates: start: 20091001
  4. COPAXONE [Concomitant]
     Dates: start: 20070216
  5. COPAXONE [Concomitant]
  6. REBIF [Concomitant]

REACTIONS (3)
  - PAIN [None]
  - PYREXIA [None]
  - VOMITING [None]
